FAERS Safety Report 4323175-1 (Version None)
Quarter: 2004Q1

REPORT INFORMATION
  Report Type: 
  Country: None (occurrence: None)
  Receive Date: 20040322
  Receipt Date: 20040308
  Transmission Date: 20041129
  Serious: Yes (Hospitalization, Other)
  Sender: FDA-Public Use
  Company Number: 2004016400

PATIENT
  Age: 76 Year
  Sex: Male
  Weight: 72 kg

DRUGS (5)
  1. SORTIS (ATORVASTATIN) [Suspect]
     Indication: ILL-DEFINED DISORDER
     Dosage: DAILY, ORAL
     Route: 048
     Dates: start: 20030206, end: 20030320
  2. PROSTA FINK (TOCOPHERYL ACETATE, SERENOA REPENS EXTRACT, RUBIA ROOT TI [Concomitant]
  3. AMLODIPINE BESYLATE [Concomitant]
  4. ENALAPRIL MALEATE [Concomitant]
  5. SPASMO-CIBALGINE SUPPOSITORY (ALLOBARBITAL, AMINOPHENAZONE, DROFENINE [Concomitant]

REACTIONS (1)
  - IDIOPATHIC THROMBOCYTOPENIC PURPURA [None]
